FAERS Safety Report 7137668-5 (Version None)
Quarter: 2010Q4

REPORT INFORMATION
  Report Type: 
  Country: None (occurrence: None)
  Receive Date: 20101119
  Receipt Date: 20101108
  Transmission Date: 20110411
  Serious: No
  Sender: FDA-Public Use
  Company Number: 016853

PATIENT
  Sex: Female
  Weight: 46.7 kg

DRUGS (4)
  1. LEVETIRACETAM [Suspect]
     Indication: CONVULSION
     Dosage: (500 MG BID ORAL) (1500 MG, 500 MG 1 TAB IN AM AND 2 TAB IN PM ORAL) (2500, 500 MG 2 TAB IN AM AND 3
     Route: 048
     Dates: start: 20100317, end: 20100401
  2. LEVETIRACETAM [Suspect]
     Indication: CONVULSION
     Dosage: (500 MG BID ORAL) (1500 MG, 500 MG 1 TAB IN AM AND 2 TAB IN PM ORAL) (2500, 500 MG 2 TAB IN AM AND 3
     Route: 048
     Dates: start: 20100401, end: 20100701
  3. LEVETIRACETAM [Suspect]
     Indication: CONVULSION
     Dosage: (500 MG BID ORAL) (1500 MG, 500 MG 1 TAB IN AM AND 2 TAB IN PM ORAL) (2500, 500 MG 2 TAB IN AM AND 3
     Route: 048
     Dates: start: 20100719
  4. ZARONTIN [Concomitant]

REACTIONS (5)
  - ABDOMINAL DISCOMFORT [None]
  - DIARRHOEA [None]
  - NAUSEA [None]
  - VOMITING [None]
  - WRONG TECHNIQUE IN DRUG USAGE PROCESS [None]
